FAERS Safety Report 14934335 (Version 1)
Quarter: 2018Q2

REPORT INFORMATION
  Report Type: Spontaneous
  Country: US (occurrence: US)
  Receive Date: 20180505
  Receipt Date: 20180505
  Transmission Date: 20180711
  Serious: Yes (Hospitalization)
  Sender: FDA-Public Use
  Company Number: None

PATIENT
  Age: 51 Year
  Sex: Male
  Weight: 130.5 kg

DRUGS (1)
  1. HYOSCAMINE SULFATE 0.125 MG TAB [Suspect]
     Active Substance: HYOSCYAMINE SULFATE
     Indication: INFLAMMATORY BOWEL DISEASE
     Route: 048
     Dates: start: 20180419, end: 20180504

REACTIONS (7)
  - Asthenia [None]
  - Pain [None]
  - Flatulence [None]
  - Pallor [None]
  - Gastrointestinal sounds abnormal [None]
  - Product substitution issue [None]
  - Abnormal faeces [None]

NARRATIVE: CASE EVENT DATE: 20180426
